FAERS Safety Report 21016258 (Version 1)
Quarter: 2022Q2

REPORT INFORMATION
  Report Type: Spontaneous
  Country: US (occurrence: US)
  Receive Date: 20220628
  Receipt Date: 20220628
  Transmission Date: 20220721
  Serious: Yes (Hospitalization)
  Sender: FDA-Public Use
  Company Number: US-MYLANLABS-2022M1048685

PATIENT
  Age: 39 Year
  Sex: Male

DRUGS (12)
  1. METHOTREXATE [Suspect]
     Active Substance: METHOTREXATE
     Indication: Dermatitis exfoliative generalised
     Dosage: UNK
     Route: 065
  2. ETANERCEPT [Suspect]
     Active Substance: ETANERCEPT
     Indication: Dermatitis exfoliative generalised
     Dosage: UNK
     Route: 065
  3. USTEKINUMAB [Suspect]
     Active Substance: USTEKINUMAB
     Indication: Dermatitis exfoliative generalised
     Dosage: UNK
     Route: 065
  4. SECUKINUMAB [Concomitant]
     Active Substance: SECUKINUMAB
     Indication: Psoriasis
     Dosage: UNK
     Route: 065
  5. SECUKINUMAB [Concomitant]
     Active Substance: SECUKINUMAB
     Dosage: UNK, STARTED 10 MONTHS PRIOR TO ADMISSION FOR PSORIASIS FLARE
     Route: 065
  6. DUPILUMAB [Concomitant]
     Active Substance: DUPILUMAB
     Indication: Dermatitis atopic
     Dosage: DOSE: 300 MG/2 ML
     Route: 065
  7. CYCLOSPORINE [Concomitant]
     Active Substance: CYCLOSPORINE
     Indication: Dermatitis atopic
     Dosage: 225 MILLIGRAM, BID
     Route: 065
  8. CYCLOSPORINE [Concomitant]
     Active Substance: CYCLOSPORINE
     Indication: Dermatitis exfoliative generalised
     Dosage: UNK
     Route: 048
  9. INFLIXIMAB [Concomitant]
     Active Substance: INFLIXIMAB
     Indication: Dermatitis exfoliative generalised
     Dosage: UNK
     Route: 065
  10. HUMAN IMMUNOGLOBULIN G [Concomitant]
     Active Substance: HUMAN IMMUNOGLOBULIN G
     Indication: Dermatitis exfoliative generalised
     Dosage: UNK
     Route: 042
  11. GUSELKUMAB [Concomitant]
     Active Substance: GUSELKUMAB
     Indication: Dermatitis exfoliative generalised
     Dosage: UNK
     Route: 065
  12. ACITRETIN [Concomitant]
     Active Substance: ACITRETIN
     Indication: Dermatitis exfoliative generalised
     Dosage: UNK
     Route: 065

REACTIONS (2)
  - Drug ineffective for unapproved indication [Unknown]
  - Off label use [Unknown]
